FAERS Safety Report 23036851 (Version 2)
Quarter: 2023Q4

REPORT INFORMATION
  Report Type: Report from Study
  Country: CA (occurrence: CA)
  Receive Date: 20231006
  Receipt Date: 20231226
  Transmission Date: 20240109
  Serious: Yes (Other)
  Sender: FDA-Public Use
  Company Number: CA-002147023-NVSC2023CA088213

PATIENT
  Sex: Female

DRUGS (1)
  1. HYRIMOZ [Suspect]
     Active Substance: ADALIMUMAB-ADAZ
     Indication: Colitis ulcerative
     Dosage: 40 MG
     Route: 058
     Dates: start: 20220515

REACTIONS (8)
  - Pancreatic atrophy [Unknown]
  - Condition aggravated [Unknown]
  - Fear [Unknown]
  - Nodule [Unknown]
  - Blood urine [Unknown]
  - Fungal infection [Unknown]
  - Rectal haemorrhage [Unknown]
  - Off label use [Unknown]
